FAERS Safety Report 7800957-2 (Version None)
Quarter: 2011Q4

REPORT INFORMATION
  Report Type: 
  Country: None (occurrence: None)
  Receive Date: 20111006
  Receipt Date: 20100129
  Transmission Date: 20120403
  Serious: No
  Sender: FDA-Public Use
  Company Number: US-BAYER-201012709NA

PATIENT
  Age: 73 Year
  Sex: Male

DRUGS (8)
  1. ZETIA [Concomitant]
  2. LANTUS [Concomitant]
  3. ACTOS [Concomitant]
  4. COZAAR [Concomitant]
  5. LEVITRA [Suspect]
     Indication: ERECTILE DYSFUNCTION
     Dosage: 10 MG, ONCE
     Route: 048
     Dates: start: 20100124, end: 20100124
  6. LEVITRA [Suspect]
     Dosage: 10 MG, PRN
     Route: 048
     Dates: start: 20100125
  7. PREVACID [Concomitant]
  8. MULTI-VITAMIN [Concomitant]

REACTIONS (1)
  - ERECTILE DYSFUNCTION [None]
